FAERS Safety Report 10307245 (Version 1)
Quarter: 2014Q3

REPORT INFORMATION
  Report Type: Spontaneous
  Country: US (occurrence: US)
  Receive Date: 20140716
  Receipt Date: 20140716
  Transmission Date: 20150326
  Serious: No
  Sender: FDA-Public Use
  Company Number: US-BIOGENIDEC-2014BI064454

PATIENT
  Age: 59 Year
  Sex: Female

DRUGS (5)
  1. TECFIDERA [Suspect]
     Active Substance: DIMETHYL FUMARATE
     Indication: MULTIPLE SCLEROSIS
     Route: 048
     Dates: start: 20140613
  2. VALIUM [Concomitant]
     Active Substance: DIAZEPAM
  3. CLARITIN [Concomitant]
     Active Substance: LORATADINE
  4. PROZAC [Concomitant]
     Active Substance: FLUOXETINE HYDROCHLORIDE
  5. FLONASE [Concomitant]
     Active Substance: FLUTICASONE PROPIONATE

REACTIONS (2)
  - Peripheral swelling [Not Recovered/Not Resolved]
  - Pain [Not Recovered/Not Resolved]

NARRATIVE: CASE EVENT DATE: 20140621
